FAERS Safety Report 5021508-4 (Version None)
Quarter: 2006Q2

REPORT INFORMATION
  Report Type: 
  Country: None (occurrence: None)
  Receive Date: 20060601
  Receipt Date: 20060308
  Transmission Date: 20061013
  Serious: No
  Sender: FDA-Public Use
  Company Number: 2006PV009962

PATIENT
  Age: 52 Year
  Sex: Female
  Weight: 127.9144 kg

DRUGS (6)
  1. BYETTA [Suspect]
     Indication: DIABETES MELLITUS NON-INSULIN-DEPENDENT
     Dosage: 5 MCG; BID; SC
     Route: 058
     Dates: start: 20060121
  2. AVANDIA [Concomitant]
  3. GLUCOVANCE [Concomitant]
  4. SINGULAIR [Concomitant]
  5. ACIPHEX [Concomitant]
  6. ZESTORECTIC [Concomitant]

REACTIONS (5)
  - BLOOD GLUCOSE INCREASED [None]
  - GASTROOESOPHAGEAL REFLUX DISEASE [None]
  - INJECTION SITE URTICARIA [None]
  - NAUSEA [None]
  - WEIGHT DECREASED [None]
